FAERS Safety Report 21547186 (Version 2)
Quarter: 2022Q4

REPORT INFORMATION
  Report Type: Spontaneous
  Country: US (occurrence: US)
  Receive Date: 20221103
  Receipt Date: 20221128
  Transmission Date: 20230113
  Serious: No
  Sender: FDA-Public Use
  Company Number: US-AIMMUNE THERAPEUTICS, INC.-2022AIMT02673

PATIENT

DRUGS (4)
  1. ZENPEP [Suspect]
     Active Substance: PANCRELIPASE AMYLASE\PANCRELIPASE LIPASE\PANCRELIPASE PROTEASE
     Indication: Pancreatic failure
     Dosage: 20000 USP UNIT, 2-4 CAPSULES WITH MEALS AND SNACKS
     Route: 048
     Dates: start: 201912
  2. ZENPEP [Suspect]
     Active Substance: PANCRELIPASE AMYLASE\PANCRELIPASE LIPASE\PANCRELIPASE PROTEASE
     Dosage: 20000 USP UNIT, 2-4 CAPSULES WITH MEALS AND SNACKS
     Route: 048
     Dates: start: 202001, end: 202001
  3. ZENPEP [Suspect]
     Active Substance: PANCRELIPASE AMYLASE\PANCRELIPASE LIPASE\PANCRELIPASE PROTEASE
     Dosage: 20000 USP UNIT, 2-4 CAPSULES WITH MEALS AND SNACKS
     Route: 048
     Dates: start: 202205, end: 202205
  4. ZENPEP [Suspect]
     Active Substance: PANCRELIPASE AMYLASE\PANCRELIPASE LIPASE\PANCRELIPASE PROTEASE
     Dosage: 20000 USP UNIT, 2-4 CAPSULES WITH MEALS AND SNACKS
     Route: 048
     Dates: start: 202209, end: 202209

REACTIONS (3)
  - Vulvovaginal pruritus [Not Recovered/Not Resolved]
  - Rash erythematous [Not Recovered/Not Resolved]
  - Hypoacusis [Not Recovered/Not Resolved]

NARRATIVE: CASE EVENT DATE: 20200101
